FAERS Safety Report 6087990-9 (Version None)
Quarter: 2009Q1

REPORT INFORMATION
  Report Type: 
  Country: None (occurrence: None)
  Receive Date: 20090219
  Receipt Date: 20090212
  Transmission Date: 20090719
  Serious: Yes (Other)
  Sender: FDA-Public Use
  Company Number: CHPA2009US04223

PATIENT
  Age: 16 Year
  Sex: Male
  Weight: 90.7 kg

DRUGS (2)
  1. THERAFLU NIGHTTIME SEVERE COLD WARMING SYRUP (NCH)(PARACETAMOL, DIPHEN [Suspect]
     Indication: COUGH
     Dosage: 30 ML, BID, ORAL
     Route: 048
     Dates: start: 20090211, end: 20090211
  2. THERAFLU NIGHTTIME SEVERE COLD WARMING SYRUP (NCH)(PARACETAMOL, DIPHEN [Suspect]
     Indication: NASOPHARYNGITIS
     Dosage: 30 ML, BID, ORAL
     Route: 048
     Dates: start: 20090211, end: 20090211

REACTIONS (1)
  - HALLUCINATION [None]
